FAERS Safety Report 10007358 (Version 1)
Quarter: 2014Q1

REPORT INFORMATION
  Report Type: Spontaneous
  Country: US (occurrence: US)
  Receive Date: 20140313
  Receipt Date: 20140313
  Transmission Date: 20141002
  Serious: Yes (Other)
  Sender: FDA-Public Use
  Company Number: US-GLAXOSMITHKLINE-A1064636A

PATIENT
  Age: 84 Year
  Sex: Female
  Weight: 69.1 kg

DRUGS (13)
  1. ADVAIR [Suspect]
     Indication: CHRONIC OBSTRUCTIVE PULMONARY DISEASE
     Dosage: 1PUFF TWICE PER DAY
     Route: 055
  2. CONTINUOUS POSITIVE AIRWAY PRESSURE [Concomitant]
  3. CO Q10 [Concomitant]
  4. GLIMEPIRIDE [Concomitant]
  5. UNKNOWN MEDICATION [Concomitant]
  6. SOTALOL [Concomitant]
  7. SYMBICORT [Concomitant]
  8. VENTOLIN HFA [Concomitant]
  9. ALTACE [Concomitant]
  10. FUROSEMIDE [Concomitant]
  11. NORVASC [Concomitant]
  12. POTASSIUM [Concomitant]
  13. OXYGEN [Concomitant]

REACTIONS (3)
  - Blindness [Unknown]
  - Chronic respiratory failure [Unknown]
  - Dyspnoea [Unknown]
